FAERS Safety Report 5110871-1 (Version None)
Quarter: 2006Q3

REPORT INFORMATION
  Report Type: 
  Country: None (occurrence: None)
  Receive Date: 20060919
  Receipt Date: 20060904
  Transmission Date: 20061208
  Serious: Yes (Other)
  Sender: FDA-Public Use
  Company Number: WAES98091778

PATIENT
  Age: 21 Year
  Sex: Male

DRUGS (10)
  1. CRIXIVAN [Suspect]
     Indication: HIV INFECTION
     Dosage: 800 MG/TID; PO; 600 MD, TID; PO
     Route: 048
     Dates: start: 19960729, end: 19961014
  2. CRIXIVAN [Suspect]
     Indication: HIV INFECTION
     Dosage: 800 MG/TID; PO; 600 MD, TID; PO
     Route: 048
     Dates: start: 19961015, end: 19980920
  3. VIDEX [Suspect]
     Indication: HIV INFECTION
     Dosage: 100 MG, BID; PO; 100 MG/BID; PO, 300 MG/ DAILY; PO
     Route: 048
     Dates: start: 19950210, end: 19950918
  4. VIDEX [Suspect]
     Indication: HIV INFECTION
     Dosage: 100 MG, BID; PO; 100 MG/BID; PO, 300 MG/ DAILY; PO
     Route: 048
     Dates: start: 19960826, end: 19991213
  5. VIDEX [Suspect]
     Indication: HIV INFECTION
     Dosage: 100 MG, BID; PO; 100 MG/BID; PO, 300 MG/ DAILY; PO
     Route: 048
     Dates: start: 19991214, end: 20040331
  6. VIDEX EC [Suspect]
     Dosage: 300 MG, DAILY; PO, 400 MG/ DAILY, PO
     Route: 048
     Dates: start: 20010401, end: 20010403
  7. VIDEX EC [Suspect]
     Dosage: 300 MG, DAILY; PO, 400 MG/ DAILY, PO
     Route: 048
     Dates: start: 20010404
  8. ` [Concomitant]
  9. VIRACEPT [Concomitant]
  10. PENTAMIDINE ISETHIONATE [Concomitant]

REACTIONS (14)
  - ACTIVATED PARTIAL THROMBOPLASTIN TIME PROLONGED [None]
  - ANAEMIA [None]
  - BLOOD ALKALINE PHOSPHATASE INCREASED [None]
  - BLOOD AMYLASE INCREASED [None]
  - BLOOD CHLORIDE DECREASED [None]
  - BLOOD LACTATE DEHYDROGENASE INCREASED [None]
  - EOSINOPHIL COUNT INCREASED [None]
  - GENERALISED OEDEMA [None]
  - HYPERBILIRUBINAEMIA [None]
  - PLATELET COUNT DECREASED [None]
  - RENAL ATROPHY [None]
  - RENAL FAILURE [None]
  - RENAL HYPERTENSION [None]
  - WHITE BLOOD CELL COUNT DECREASED [None]
